FAERS Safety Report 5778840-6 (Version None)
Quarter: 2008Q2

REPORT INFORMATION
  Report Type: 
  Country: None (occurrence: None)
  Receive Date: 20080619
  Receipt Date: 20080520
  Transmission Date: 20081010
  Serious: Yes (Other)
  Sender: FDA-Public Use
  Company Number: PHHY2008GB08603

PATIENT
  Sex: Male

DRUGS (7)
  1. ZOMETA [Suspect]
     Indication: METASTATIC PAIN
     Dosage: UNK
     Route: 042
     Dates: start: 20050830
  2. ZOMETA [Suspect]
     Dosage: UNK
     Dates: start: 20051128
  3. ZOMETA [Suspect]
     Dosage: UNK
     Dates: start: 20060109
  4. ZOMETA [Suspect]
     Dosage: UNK
     Dates: start: 20060206
  5. ZOMETA [Suspect]
     Dosage: UNK
     Dates: start: 20060306
  6. WARFARIN SODIUM [Concomitant]
  7. HORMONES AND RELATED AGENTS [Concomitant]

REACTIONS (4)
  - BONE DISORDER [None]
  - OSTEONECROSIS [None]
  - PAIN IN JAW [None]
  - RENAL IMPAIRMENT [None]
